FAERS Safety Report 14002648 (Version 1)
Quarter: 2017Q3

REPORT INFORMATION
  Report Type: Spontaneous
  Country: US (occurrence: US)
  Receive Date: 20170922
  Receipt Date: 20170922
  Transmission Date: 20171128
  Serious: No
  Sender: FDA-Public Use
  Company Number: US-AMGEN-USASP2016184890

PATIENT
  Sex: Male

DRUGS (3)
  1. NEUPOGEN [Suspect]
     Active Substance: FILGRASTIM
     Dosage: 300 MUG, QD FOR SEVEN DAYS
     Route: 065
  2. NEUPOGEN [Suspect]
     Active Substance: FILGRASTIM
     Dosage: 300 MUG, QD, FOR 10 DAYS
     Route: 065
  3. NEUPOGEN [Suspect]
     Active Substance: FILGRASTIM
     Indication: NEUTROPENIA
     Dosage: 300 MUG, QD FOR FIVE DAYS
     Route: 065

REACTIONS (1)
  - Therapy non-responder [Unknown]
